FAERS Safety Report 8297097-8 (Version None)
Quarter: 2012Q2

REPORT INFORMATION
  Report Type: 
  Country: None (occurrence: None)
  Receive Date: 20120419
  Receipt Date: 20120411
  Transmission Date: 20120825
  Serious: Yes (Hospitalization)
  Sender: FDA-Public Use
  Company Number: US-BAYER-2011-111119

PATIENT
  Age: 38 Year
  Sex: Female

DRUGS (5)
  1. MUCINEX [Concomitant]
     Dosage: 600 MG, QD
     Route: 048
     Dates: start: 20091017
  2. DROSPIRENONE AND ETHINYL ESTRADIOL [Suspect]
     Dosage: UNK
     Dates: start: 20071101, end: 20091001
  3. WELLBUTRIN [Concomitant]
     Dosage: 300 MG, QD
     Route: 048
     Dates: start: 20091017
  4. METFORMIN HCL [Concomitant]
     Dosage: 1000 MG, QD
     Route: 048
     Dates: start: 20091017
  5. ALBUTEROL [Concomitant]

REACTIONS (7)
  - INJURY [None]
  - OEDEMA PERIPHERAL [None]
  - PULMONARY EMBOLISM [None]
  - FATIGUE [None]
  - DEEP VEIN THROMBOSIS [None]
  - THROMBOSIS [None]
  - ERYTHEMA [None]
